FAERS Safety Report 9294068 (Version 1)
Quarter: 2013Q1

REPORT INFORMATION
  Report Type: Spontaneous
  Country: US (occurrence: None)
  Receive Date: 20121227
  Receipt Date: 20121227
  Transmission Date: 20140127
  Serious: Yes (Hospitalization)
  Sender: FDA-Public Use
  Company Number: PHEH2011US012407

PATIENT
  Age: 36 Year
  Sex: Male

DRUGS (4)
  1. EXJADE (*CGP 72670*) UNKNOWN [Suspect]
     Indication: IRON OVERLOAD
     Route: 048
     Dates: start: 20110310
  2. FOLIC ACID (FOLIC ACID) [Concomitant]
  3. VICODIN (HYDROCODONE BITARTRATE, PARACETAMOL) [Concomitant]
  4. MS CONTIN [Concomitant]

REACTIONS (3)
  - Sickle cell anaemia with crisis [None]
  - Pain [None]
  - Haemoglobin decreased [None]
